FAERS Safety Report 10173520 (Version 1)
Quarter: 2014Q2

REPORT INFORMATION
  Report Type: Spontaneous
  Country: US (occurrence: US)
  Receive Date: 20140515
  Receipt Date: 20140515
  Transmission Date: 20141212
  Serious: No
  Sender: FDA-Public Use
  Company Number: US-PFIZER INC-2014133048

PATIENT
  Age: 59 Year
  Sex: Male
  Weight: 71.66 kg

DRUGS (3)
  1. GABAPENTIN [Suspect]
     Indication: FIBROMYALGIA
     Dosage: 300 MG, UNK
     Dates: start: 2014, end: 2014
  2. GABAPENTIN [Suspect]
     Dosage: 600 MG, 3X/DAY
     Dates: start: 2014
  3. HYDROCODONE [Concomitant]
     Indication: PAIN
     Dosage: UNK

REACTIONS (1)
  - Swelling [Unknown]
